FAERS Safety Report 7542918-7 (Version None)
Quarter: 2011Q2

REPORT INFORMATION
  Report Type: 
  Country: None (occurrence: None)
  Receive Date: 20110613
  Receipt Date: 20110601
  Transmission Date: 20111010
  Serious: Yes (Other)
  Sender: FDA-Public Use
  Company Number: PHHY2011US43933

PATIENT
  Sex: Female

DRUGS (6)
  1. GILENYA [Suspect]
     Indication: MULTIPLE SCLEROSIS
     Dosage: 0.5 MG, QD
     Route: 048
     Dates: start: 20110420, end: 20110517
  2. NEURONTIN [Concomitant]
     Indication: NEUROPATHY PERIPHERAL
     Dosage: 300 MG, TID
     Route: 048
  3. PROVIGIL [Concomitant]
     Indication: FATIGUE
     Dosage: 200 MG, BID
     Route: 048
  4. SIMVASTATIN [Concomitant]
     Indication: BLOOD CHOLESTEROL INCREASED
     Dosage: 40 MG, QD
     Route: 048
  5. ZOCOR [Concomitant]
     Dosage: UNK
  6. PREMARIN [Concomitant]
     Dosage: 0.05 MG, QD
     Route: 048

REACTIONS (4)
  - COUGH [None]
  - GAIT DISTURBANCE [None]
  - DYSPNOEA [None]
  - BACK PAIN [None]
